FAERS Safety Report 11555695 (Version 3)
Quarter: 2015Q4

REPORT INFORMATION
  Report Type: Spontaneous
  Country: US (occurrence: US)
  Receive Date: 20150925
  Receipt Date: 20151124
  Transmission Date: 20160304
  Serious: Yes (Other)
  Sender: FDA-Public Use
  Company Number: US-ENDO PHARMACEUTICALS INC.-2015-003021

PATIENT
  Age: 54 Year
  Sex: Female
  Weight: 48.58 kg

DRUGS (3)
  1. SELEGILINE HYDROCHLORIDE CAPSULES 5 MG [Suspect]
     Active Substance: SELEGILINE HYDROCHLORIDE
     Indication: FATIGUE
     Route: 065
     Dates: start: 20120918, end: 20150119
  2. SELEGILINE HYDROCHLORIDE CAPSULES 5 MG [Suspect]
     Active Substance: SELEGILINE HYDROCHLORIDE
     Indication: NERVOUS SYSTEM DISORDER
  3. MILK OF MAGNESIA [Concomitant]
     Active Substance: MAGNESIUM HYDROXIDE
     Indication: GASTROINTESTINAL MOTILITY DISORDER
     Dosage: 4 DOSES
     Route: 065

REACTIONS (8)
  - Psychotic disorder [Unknown]
  - Off label use [Unknown]
  - Oesophageal spasm [Unknown]
  - Eye disorder [Unknown]
  - Headache [Unknown]
  - Encephalitis [Unknown]
  - Paraesthesia [Unknown]
  - Nystagmus [Unknown]

NARRATIVE: CASE EVENT DATE: 20120918
